FAERS Safety Report 6756252-6 (Version None)
Quarter: 2010Q2

REPORT INFORMATION
  Report Type: 
  Country: None (occurrence: None)
  Receive Date: 20100604
  Receipt Date: 20100525
  Transmission Date: 20101027
  Serious: Yes (Other)
  Sender: FDA-Public Use
  Company Number: JP-PFIZER INC-2010066953

PATIENT
  Age: 30 Year
  Sex: Female

DRUGS (7)
  1. ZOLOFT [Suspect]
     Indication: DEPRESSION
     Dosage: 25MG DAILY
     Route: 048
  2. ZOLOFT [Suspect]
     Indication: PANIC DISORDER
     Dosage: 75MG DAILY
     Route: 048
     Dates: start: 20100412
  3. ZOLOFT [Suspect]
     Dosage: 50MG DAILY
     Route: 048
     Dates: start: 20100101
  4. AMITRIPTYLINE HCL [Suspect]
     Dosage: UNK
  5. MYSLEE [Suspect]
     Dosage: UNK
  6. MEILAX [Suspect]
     Dosage: UNK
  7. DEPAS [Suspect]
     Dosage: UNK

REACTIONS (4)
  - DRUG INTERACTION [None]
  - DYSGEUSIA [None]
  - HYPOAESTHESIA [None]
  - PARAESTHESIA ORAL [None]
